FAERS Safety Report 25397939 (Version 2)
Quarter: 2025Q2

REPORT INFORMATION
  Report Type: Spontaneous
  Country: ES (occurrence: ES)
  Receive Date: 20250604
  Receipt Date: 20250618
  Transmission Date: 20250716
  Serious: No
  Sender: ALEXION PHARMACEUTICALS
  Company Number: ES-AstraZeneca-2023A260195

PATIENT

DRUGS (1)
  1. PULMICORT TURBUHALER [Suspect]
     Active Substance: BUDESONIDE

REACTIONS (2)
  - Drug dose omission by device [Unknown]
  - Device breakage [Unknown]
